FAERS Safety Report 12767094 (Version 2)
Quarter: 2016Q4

REPORT INFORMATION
  Report Type: Spontaneous
  Country: US (occurrence: US)
  Receive Date: 20160921
  Receipt Date: 20161007
  Transmission Date: 20170207
  Serious: No
  Sender: FDA-Public Use
  Company Number: US-ASTRAZENECA-2016SE78764

PATIENT
  Age: 828 Month
  Sex: Female
  Weight: 102.1 kg

DRUGS (4)
  1. FASLODEX [Suspect]
     Active Substance: FULVESTRANT
     Indication: BREAST CANCER METASTATIC
     Route: 030
     Dates: start: 2016
  2. IBRANCE [Suspect]
     Active Substance: PALBOCICLIB
     Indication: BREAST CANCER METASTATIC
     Dosage: 125MG CAPSULE BY MOUTH ONCE DAILY FOR 21 DAYS THEN OFF 7 DAYS
     Route: 048
     Dates: start: 201511
  3. FASLODEX [Suspect]
     Active Substance: FULVESTRANT
     Indication: BREAST CANCER METASTATIC
     Dosage: 500MG, INTAMUSCULAR INJECTION MONTHLY 1ST DAY OF IBRANCE CYCLE
     Route: 030
     Dates: start: 201511
  4. LETROZOLE. [Concomitant]
     Active Substance: LETROZOLE
     Dates: start: 201410, end: 201510

REACTIONS (9)
  - Haemoglobin decreased [Not Recovered/Not Resolved]
  - Musculoskeletal stiffness [Recovered/Resolved]
  - Arthralgia [Recovered/Resolved]
  - Fatigue [Recovered/Resolved]
  - White blood cell count decreased [Not Recovered/Not Resolved]
  - Haematocrit abnormal [Not Recovered/Not Resolved]
  - Product use issue [Unknown]
  - Red blood cell count decreased [Not Recovered/Not Resolved]
  - Neutropenia [Not Recovered/Not Resolved]

NARRATIVE: CASE EVENT DATE: 201511
